FAERS Safety Report 8849266 (Version 2)
Quarter: 2012Q4

REPORT INFORMATION
  Report Type: 
  Country: GB (occurrence: GB)
  Receive Date: 20121019
  Receipt Date: 20121023
  Transmission Date: 20130627
  Serious: Yes (Hospitalization)
  Sender: FDA-Public Use
  Company Number: GB-US-EMD SERONO, INC.-7168070

PATIENT
  Age: 7 None
  Sex: Female

DRUGS (2)
  1. SAIZEN [Suspect]
     Indication: PRODUCT USED FOR UNKNOWN INDICATION
     Route: 058
     Dates: start: 2005
  2. SAIZEN [Suspect]
     Route: 058
     Dates: start: 20121013, end: 20121014

REACTIONS (5)
  - Gastroenteritis viral [Not Recovered/Not Resolved]
  - Thyroxine abnormal [Not Recovered/Not Resolved]
  - Hypopituitarism [Not Recovered/Not Resolved]
  - Overdose [Not Recovered/Not Resolved]
  - Device issue [Unknown]
